FAERS Safety Report 6327490-1 (Version None)
Quarter: 2009Q3

REPORT INFORMATION
  Report Type: 
  Country: None (occurrence: None)
  Receive Date: 20090825
  Receipt Date: 20090817
  Transmission Date: 20100115
  Serious: Yes (Other)
  Sender: FDA-Public Use
  Company Number: BR-SANOFI-SYNTHELABO-A01200906904

PATIENT
  Sex: Female
  Weight: 77 kg

DRUGS (9)
  1. GLIMEPIRIDE [Concomitant]
     Indication: DIABETES MELLITUS
     Route: 048
  2. AMLODIPINE [Concomitant]
     Indication: HYPERTENSION
     Route: 048
     Dates: start: 20050101
  3. LOSARTAN POTASSIUM [Concomitant]
     Indication: HYPERTENSION
     Route: 048
     Dates: start: 20080101
  4. PLAVIX [Suspect]
     Indication: ANGIOPLASTY
     Route: 048
     Dates: start: 20090320, end: 20090601
  5. PLAVIX [Suspect]
     Indication: ACUTE MYOCARDIAL INFARCTION
     Route: 048
     Dates: start: 20090320, end: 20090601
  6. PLAVIX [Suspect]
     Route: 048
     Dates: start: 20090619, end: 20090812
  7. PLAVIX [Suspect]
     Route: 048
     Dates: start: 20090619, end: 20090812
  8. PLAVIX [Suspect]
     Route: 048
     Dates: start: 20090801
  9. PLAVIX [Suspect]
     Route: 048
     Dates: start: 20090801

REACTIONS (6)
  - CHEST PAIN [None]
  - DRUG INEFFECTIVE [None]
  - FACIAL PARESIS [None]
  - HEAD DISCOMFORT [None]
  - PARAESTHESIA [None]
  - PRODUCT COUNTERFEIT [None]
